FAERS Safety Report 10932702 (Version 1)
Quarter: 2015Q1

REPORT INFORMATION
  Report Type: Spontaneous
  Country: US (occurrence: None)
  Receive Date: 20150319
  Receipt Date: 20150319
  Transmission Date: 20150721
  Serious: Yes (Other)
  Sender: FDA-Public Use
  Company Number: None

PATIENT
  Age: 69 Year
  Sex: Male

DRUGS (19)
  1. PROPRANOLOL [Concomitant]
     Active Substance: PROPRANOLOL\PROPRANOLOL HYDROCHLORIDE
  2. TRAZODONE [Concomitant]
     Active Substance: TRAZODONE HYDROCHLORIDE
  3. LOMOTIL [Concomitant]
     Active Substance: ATROPINE SULFATE\DIPHENOXYLATE HYDROCHLORIDE
  4. DICYCLOMINE [Concomitant]
     Active Substance: DICYCLOMINE HYDROCHLORIDE
  5. GI COCKTAIL 20 ML -PHENOBARBITAL [Suspect]
     Active Substance: PHENOBARBITAL
     Dosage: 1 DOSE
     Route: 048
     Dates: start: 20150106, end: 20150106
  6. HYDROCHLOROTHIAZIDE. [Concomitant]
     Active Substance: HYDROCHLOROTHIAZIDE
  7. AVALIDE [Concomitant]
     Active Substance: HYDROCHLOROTHIAZIDE\IRBESARTAN
  8. VITAMIN C [Concomitant]
     Active Substance: ASCORBIC ACID
  9. VITAMIN B12 [Concomitant]
     Active Substance: CYANOCOBALAMIN
  10. LIPITOR [Concomitant]
     Active Substance: ATORVASTATIN CALCIUM
  11. 81 MG ASPIRIN [Concomitant]
  12. CENTRUM SENIOR [Concomitant]
  13. MAALOX ANTACID [Suspect]
     Active Substance: ALUMINUM HYDROXIDE\DIMETHICONE\MAGNESIUM HYDROXIDE
  14. GLIPIZIDE. [Concomitant]
     Active Substance: GLIPIZIDE
  15. PRILOSEC [Concomitant]
     Active Substance: OMEPRAZOLE MAGNESIUM
  16. BENTYL [Concomitant]
     Active Substance: DICYCLOMINE HYDROCHLORIDE
  17. RANITIDINE [Concomitant]
     Active Substance: RANITIDINE\RANITIDINE HYDROCHLORIDE
  18. GI COCKTAIL 20 ML - BELLADONNA [Suspect]
     Active Substance: BELLADONNA ALKALOIDS
  19. GI COCKTAIL 20 ML -PHENOBARBITAL [Suspect]
     Active Substance: PHENOBARBITAL
     Indication: ABDOMINAL DISCOMFORT
     Dosage: 1 DOSE
     Route: 048
     Dates: start: 20150106, end: 20150106

REACTIONS (3)
  - Psychotic disorder [None]
  - Agitation [None]
  - Nervousness [None]

NARRATIVE: CASE EVENT DATE: 20150106
